FAERS Safety Report 23364864 (Version 1)
Quarter: 2024Q1

REPORT INFORMATION
  Report Type: Spontaneous
  Country: US (occurrence: US)
  Receive Date: 20240104
  Receipt Date: 20240104
  Transmission Date: 20240409
  Serious: Yes (Hospitalization, Other)
  Sender: FDA-Public Use
  Company Number: US-SPECGX-T202302436

PATIENT
  Age: 29 Year
  Sex: Female

DRUGS (3)
  1. LISDEXAMFETAMINE DIMESYLATE [Suspect]
     Active Substance: LISDEXAMFETAMINE DIMESYLATE
     Indication: Product used for unknown indication
     Dosage: UNK
     Route: 065
  2. ALPRAZOLAM [Suspect]
     Active Substance: ALPRAZOLAM
     Indication: Product used for unknown indication
     Dosage: UNK
     Route: 065
  3. BUPROPION [Suspect]
     Active Substance: BUPROPION
     Indication: Product used for unknown indication
     Dosage: UNK
     Route: 065

REACTIONS (10)
  - Unresponsive to stimuli [Unknown]
  - Electrocardiogram QT prolonged [Unknown]
  - Status epilepticus [Unknown]
  - Anisocoria [Unknown]
  - Hypotension [Unknown]
  - Ventricular tachycardia [Unknown]
  - Overdose [Unknown]
  - Lung assist device therapy [Unknown]
  - Mechanical ventilation [Unknown]
  - Cardioversion [Unknown]
